FAERS Safety Report 16933700 (Version 1)
Quarter: 2019Q4

REPORT INFORMATION
  Report Type: Spontaneous
  Country: US (occurrence: US)
  Receive Date: 20191018
  Receipt Date: 20191018
  Transmission Date: 20200122
  Serious: No
  Sender: FDA-Public Use
  Company Number: US-DRREDDYS-USA/USA/19/0114946

PATIENT
  Age: 85 Year
  Sex: Female
  Weight: 42.75 kg

DRUGS (1)
  1. DOANS EXTRA STRENGTH [Suspect]
     Active Substance: MAGNESIUM SALICYLATE
     Indication: BACK PAIN
     Route: 048
     Dates: start: 20191008, end: 20191008

REACTIONS (2)
  - Drug ineffective [Unknown]
  - Product quality issue [Unknown]

NARRATIVE: CASE EVENT DATE: 20191008
